FAERS Safety Report 5032997-3 (Version None)
Quarter: 2006Q2

REPORT INFORMATION
  Report Type: 
  Country: None (occurrence: None)
  Receive Date: 20060515
  Receipt Date: 20060309
  Transmission Date: 20061013
  Serious: No
  Sender: FDA-Public Use
  Company Number: S06-USA-01075-01

PATIENT
  Age: 87 Year
  Sex: Male

DRUGS (11)
  1. NAMENDA [Suspect]
     Indication: DEMENTIA ALZHEIMER'S TYPE
     Dosage: 5 MG QD PO
     Route: 048
     Dates: start: 20040101, end: 20040101
  2. NAMENDA [Suspect]
     Indication: DEMENTIA ALZHEIMER'S TYPE
     Dosage: 5 MG BID PO
     Route: 048
     Dates: start: 20040101, end: 20040101
  3. NAMENDA [Suspect]
     Indication: DEMENTIA ALZHEIMER'S TYPE
     Dosage: 15 MG QD PO
     Route: 048
     Dates: start: 20040101, end: 20040101
  4. NAMENDA [Suspect]
     Indication: DEMENTIA ALZHEIMER'S TYPE
     Dosage: 10 MG BID PO
     Route: 048
     Dates: start: 20040101, end: 20060302
  5. ZOCOR [Concomitant]
  6. HYTRIN [Concomitant]
  7. EXELON (RIVASTIGIME TARTRATE) [Concomitant]
  8. ACTONEL [Concomitant]
  9. SINEMET [Concomitant]
  10. IRON [Concomitant]
  11. ASPIRIN [Concomitant]

REACTIONS (3)
  - ANOREXIA [None]
  - NAUSEA [None]
  - NIGHT SWEATS [None]
